FAERS Safety Report 4998220-0 (Version None)
Quarter: 2006Q2

REPORT INFORMATION
  Report Type: 
  Country: None (occurrence: None)
  Receive Date: 20060510
  Receipt Date: 20050113
  Transmission Date: 20061013
  Serious: Yes (Hospitalization)
  Sender: FDA-Public Use
  Company Number: US-MERCK-0501USA01813

PATIENT
  Age: 58 Year
  Sex: Female

DRUGS (4)
  1. VIOXX [Suspect]
     Route: 048
     Dates: start: 20000101, end: 20040901
  2. VIOXX [Suspect]
     Route: 048
     Dates: start: 20000101, end: 20040901
  3. VIOXX [Suspect]
     Route: 048
     Dates: start: 20000101, end: 20040901
  4. VIOXX [Suspect]
     Route: 048
     Dates: start: 20000101, end: 20040901

REACTIONS (15)
  - ACUTE MYOCARDIAL INFARCTION [None]
  - ANAEMIA [None]
  - ANTIPHOSPHOLIPID SYNDROME [None]
  - CARDIAC FAILURE CONGESTIVE [None]
  - CARPAL TUNNEL SYNDROME [None]
  - CEREBROVASCULAR ACCIDENT [None]
  - CHRONIC OBSTRUCTIVE PULMONARY DISEASE [None]
  - CORONARY ARTERY DISEASE [None]
  - DEPRESSION [None]
  - DYSPNOEA [None]
  - HYPERTENSION [None]
  - PNEUMONIA [None]
  - PYELONEPHRITIS ACUTE [None]
  - RESTLESS LEGS SYNDROME [None]
  - TRANSIENT ISCHAEMIC ATTACK [None]
